FAERS Safety Report 20170506 (Version 2)
Quarter: 2021Q4

REPORT INFORMATION
  Report Type: Spontaneous
  Country: GB (occurrence: GB)
  Receive Date: 20211210
  Receipt Date: 20211213
  Transmission Date: 20220303
  Serious: Yes (Life-Threatening, Hospitalization, Disabling, Congenital Anomaly, Other)
  Sender: FDA-Public Use
  Company Number: GB-ViiV Healthcare Limited-A1041735A

PATIENT
  Sex: Female
  Weight: 2.2 kg

DRUGS (16)
  1. NORVIR [Suspect]
     Active Substance: RITONAVIR
     Indication: Maternal exposure timing unspecified
     Route: 064
     Dates: start: 20060905, end: 20060905
  2. NORVIR [Suspect]
     Active Substance: RITONAVIR
     Route: 064
     Dates: start: 20060905, end: 20081022
  3. NORVIR [Suspect]
     Active Substance: RITONAVIR
     Route: 064
     Dates: start: 20081023
  4. ZIDOVUDINE [Suspect]
     Active Substance: ZIDOVUDINE
     Indication: Maternal exposure timing unspecified
     Route: 064
  5. ZIDOVUDINE [Suspect]
     Active Substance: ZIDOVUDINE
     Route: 064
  6. INTELENCE [Suspect]
     Active Substance: ETRAVIRINE
     Indication: Maternal exposure timing unspecified
     Route: 064
     Dates: start: 20081023
  7. TIPRANAVIR [Suspect]
     Active Substance: TIPRANAVIR
     Indication: Maternal exposure timing unspecified
     Route: 064
     Dates: start: 20070605, end: 200810
  8. ISENTRESS [Suspect]
     Active Substance: RALTEGRAVIR POTASSIUM
     Indication: Maternal exposure timing unspecified
     Route: 064
     Dates: start: 20081023, end: 20090221
  9. ISENTRESS [Suspect]
     Active Substance: RALTEGRAVIR POTASSIUM
     Route: 064
  10. TRUVADA [Suspect]
     Active Substance: EMTRICITABINE\TENOFOVIR DISOPROXIL FUMARATE
     Indication: Maternal exposure timing unspecified
     Route: 064
     Dates: start: 20070605, end: 20081023
  11. TRUVADA [Suspect]
     Active Substance: EMTRICITABINE\TENOFOVIR DISOPROXIL FUMARATE
     Route: 064
  12. NITROUS OXIDE [Concomitant]
     Active Substance: NITROUS OXIDE
     Indication: Maternal exposure timing unspecified
     Dosage: UNK
     Route: 064
  13. PREDNISOLONE [Concomitant]
     Active Substance: PREDNISOLONE
     Indication: Maternal exposure timing unspecified
     Dosage: 25 MG, QD
     Route: 064
  14. NOVORAPID [Concomitant]
     Active Substance: INSULIN ASPART
     Indication: Maternal exposure timing unspecified
     Dosage: 200 MG, BID
     Route: 064
  15. ENFUVIRTIDE [Concomitant]
     Active Substance: ENFUVIRTIDE
     Indication: Maternal exposure timing unspecified
     Dosage: UNK
     Route: 064
  16. OXYGEN [Concomitant]
     Active Substance: OXYGEN
     Indication: Maternal exposure timing unspecified
     Dosage: UNK
     Route: 064

REACTIONS (35)
  - Sepsis neonatal [Recovered/Resolved]
  - Blood iron decreased [Recovered/Resolved]
  - Anencephaly [Unknown]
  - Exomphalos [Recovered/Resolved with Sequelae]
  - Tethered cord syndrome [Recovered/Resolved with Sequelae]
  - Lipodystrophy acquired [Not Recovered/Not Resolved]
  - Cloacal exstrophy [Recovered/Resolved with Sequelae]
  - Bladder agenesis [Recovered/Resolved with Sequelae]
  - Meningomyelocele [Recovered/Resolved with Sequelae]
  - Meconium stain [Recovered/Resolved with Sequelae]
  - Spina bifida [Unknown]
  - Meningomyelocele [Recovered/Resolved with Sequelae]
  - Neural tube defect [Unknown]
  - Premature baby [Recovered/Resolved]
  - Umbilical cord abnormality [Recovered/Resolved with Sequelae]
  - Congenital musculoskeletal anomaly [Recovered/Resolved with Sequelae]
  - Anal atresia [Recovered/Resolved with Sequelae]
  - Fibrosis [Unknown]
  - Gastrointestinal malformation [Unknown]
  - Congenital anomaly [Unknown]
  - Congenital ectopic bladder [Unknown]
  - Congenital musculoskeletal anomaly [Recovered/Resolved]
  - Gastrointestinal disorder congenital [Unknown]
  - Erythema [Recovered/Resolved]
  - Sepsis [Recovered/Resolved]
  - Spine malformation [Recovered/Resolved with Sequelae]
  - Umbilical cord abnormality [Unknown]
  - Caudal regression syndrome [Recovered/Resolved with Sequelae]
  - Spine malformation [Unknown]
  - Bladder agenesis [Unknown]
  - Congenital genital malformation [Recovered/Resolved with Sequelae]
  - Musculoskeletal discomfort [Recovered/Resolved with Sequelae]
  - Genitalia external ambiguous [Recovered/Resolved with Sequelae]
  - Congenital ectopic bladder [Unknown]
  - Foetal exposure during pregnancy [Unknown]

NARRATIVE: CASE EVENT DATE: 20080614
